FAERS Safety Report 22229608 (Version 1)
Quarter: 2023Q2

REPORT INFORMATION
  Report Type: Spontaneous
  Country: US (occurrence: US)
  Receive Date: 20230419
  Receipt Date: 20230419
  Transmission Date: 20230722
  Serious: No
  Sender: FDA-Public Use
  Company Number: US-ALLERGAN-2236689US

PATIENT
  Sex: Male

DRUGS (1)
  1. RESTASIS [Suspect]
     Active Substance: CYCLOSPORINE
     Indication: Product used for unknown indication
     Dosage: 2 GTT
     Route: 047
     Dates: start: 2022

REACTIONS (3)
  - Multiple use of single-use product [Unknown]
  - Eye irritation [Unknown]
  - Vision blurred [Recovered/Resolved]
